FAERS Safety Report 5635749-6 (Version None)
Quarter: 2008Q1

REPORT INFORMATION
  Report Type: 
  Country: None (occurrence: None)
  Receive Date: 20080220
  Receipt Date: 20080131
  Transmission Date: 20080703
  Serious: Yes (Death, Life-Threatening, Hospitalization, Other)
  Sender: FDA-Public Use
  Company Number: 2008S1001755

PATIENT
  Age: 81 Year
  Sex: Male

DRUGS (8)
  1. AMIODARONE HCL [Suspect]
     Indication: VENTRICULAR TACHYCARDIA
     Dosage: 20 MG; DAILY
     Dates: start: 20070101, end: 20070101
  2. ASPIRIN [Concomitant]
  3. ATORVASTATIN CALCIUM [Concomitant]
  4. FUROSEMIDE [Concomitant]
  5. ISOSORBIAE MONONITRATE (ISOSORBIDE MONONITRATE) [Concomitant]
  6. LANSOPRAZOLE [Concomitant]
  7. RAMIPRIL [Concomitant]
  8. SPIRONOLACTONE [Concomitant]

REACTIONS (6)
  - ALVEOLITIS [None]
  - BALANCE DISORDER [None]
  - CARDIAC FAILURE [None]
  - DYSPNOEA [None]
  - PNEUMONIA [None]
  - TREMOR [None]
